FAERS Safety Report 25709651 (Version 1)
Quarter: 2025Q3

REPORT INFORMATION
  Report Type: Spontaneous
  Country: US (occurrence: US)
  Receive Date: 20250821
  Receipt Date: 20250821
  Transmission Date: 20251021
  Serious: No
  Sender: ABBVIE
  Company Number: US-ABBVIE-6419646

PATIENT

DRUGS (1)
  1. OZURDEX [Suspect]
     Active Substance: DEXAMETHASONE
     Indication: Uveitis
     Route: 050
     Dates: start: 2023

REACTIONS (1)
  - Foreign body in eye [Not Recovered/Not Resolved]
